FAERS Safety Report 8866215 (Version 3)
Quarter: 2012Q4

REPORT INFORMATION
  Report Type: 
  Country: US (occurrence: US)
  Receive Date: 20121025
  Receipt Date: 20121213
  Transmission Date: 20130627
  Serious: No
  Sender: FDA-Public Use
  Company Number: US-PFIZER INC-2012264270

PATIENT
  Age: 70 Year
  Sex: Male
  Weight: 95.24 kg

DRUGS (3)
  1. ADVIL PM [Suspect]
     Indication: DIFFICULTY SLEEPING
     Dosage: 38 mg, single
     Route: 048
     Dates: start: 20121016, end: 20121016
  2. ATENOLOL [Concomitant]
     Indication: BLOOD PRESSURE HIGH
     Dosage: 25 mg, daily
  3. SIMVASTATIN [Concomitant]
     Indication: HIGH CHOLESTEROL
     Dosage: 40 mg, daily

REACTIONS (1)
  - Drug ineffective [Unknown]
